FAERS Safety Report 18314839 (Version 1)
Quarter: 2020Q3

REPORT INFORMATION
  Report Type: Report from Study
  Country: US (occurrence: US)
  Receive Date: 20200925
  Receipt Date: 20200925
  Transmission Date: 20201103
  Serious: Yes (Other)
  Sender: FDA-Public Use
  Company Number: US-ASTRAZENECA-2020SF22482

PATIENT
  Sex: Female
  Weight: 65.8 kg

DRUGS (1)
  1. TAGRISSO [Suspect]
     Active Substance: OSIMERTINIB
     Indication: LUNG CARCINOMA CELL TYPE UNSPECIFIED STAGE IV
     Route: 048
     Dates: start: 202003

REACTIONS (5)
  - Fluid intake reduced [Unknown]
  - Dizziness [Unknown]
  - Dehydration [Unknown]
  - Bone density abnormal [Unknown]
  - Exposure to extreme temperature [Unknown]
